FAERS Safety Report 18311249 (Version 1)
Quarter: 2020Q3

REPORT INFORMATION
  Report Type: Report from Study
  Country: None (occurrence: US)
  Receive Date: 20200925
  Receipt Date: 20200925
  Transmission Date: 20201103
  Serious: Yes (Other)
  Sender: FDA-Public Use
  Company Number: US-ABBVIE-20K-163-3574409-00

PATIENT
  Sex: Female

DRUGS (1)
  1. HUMIRA [Suspect]
     Active Substance: ADALIMUMAB
     Indication: ANKYLOSING SPONDYLITIS
     Route: 058
     Dates: start: 20200706, end: 20200706

REACTIONS (4)
  - General physical health deterioration [Unknown]
  - Road traffic accident [Unknown]
  - Neoplasm malignant [Unknown]
  - Illness [Unknown]

NARRATIVE: CASE EVENT DATE: 2020
